FAERS Safety Report 7011731-1 (Version None)
Quarter: 2010Q3

REPORT INFORMATION
  Report Type: 
  Country: None (occurrence: None)
  Receive Date: 20100923
  Receipt Date: 20090825
  Transmission Date: 20110219
  Serious: No
  Sender: FDA-Public Use
  Company Number: US-WYE-H10413709

PATIENT
  Sex: Female
  Weight: 71.73 kg

DRUGS (7)
  1. PREMARIN [Suspect]
     Indication: VULVOVAGINAL DRYNESS
     Route: 067
     Dates: start: 20090515, end: 20090729
  2. SYNTHROID [Concomitant]
  3. DICYCLOVERINE [Concomitant]
  4. PRILOSEC [Concomitant]
  5. FLUOXETINE [Concomitant]
  6. PREMARIN [Concomitant]
  7. CLOBETASOL PROPIONATE [Concomitant]

REACTIONS (3)
  - PRODUCT QUALITY ISSUE [None]
  - VULVOVAGINAL BURNING SENSATION [None]
  - VULVOVAGINAL PRURITUS [None]
